FAERS Safety Report 5883685-2 (Version None)
Quarter: 2008Q3

REPORT INFORMATION
  Report Type: 
  Country: None (occurrence: None)
  Receive Date: 20080910
  Receipt Date: 20080605
  Transmission Date: 20090109
  Serious: Yes (Hospitalization)
  Sender: FDA-Public Use
  Company Number: 026#1#2008-00011

PATIENT
  Age: 76 Year
  Sex: Female

DRUGS (11)
  1. NEUPRO [Suspect]
     Indication: PARKINSON'S DISEASE
     Dosage: 2 MG/24H  (2 MG/24H 1 IN 1 DAY(S) )
     Route: 062
     Dates: start: 20080401
  2. WARFARIN SODIUM [Concomitant]
  3. AMANTADINE HCL [Concomitant]
  4. RASAGILINE [Concomitant]
  5. BENSERAZIDE HYDROCHLORIDE, LEVODOPA (BENSERAZIDE HYDROCHLORIDE, LEVODO [Concomitant]
  6. ENTACAPONE (ENTACAPONE) [Concomitant]
  7. SERTRALINE (SERTRALINE HYDROCHLORIDE) [Concomitant]
  8. OXAZEPAM [Concomitant]
  9. DIHYDROERGOTAMINE BISOPROLOL (DIHYDROERGOTAMINE MESILATE) [Concomitant]
  10. BISOPROLOL FUMARATE [Concomitant]
  11. LACTULOSE [Concomitant]

REACTIONS (5)
  - BLOOD URINE PRESENT [None]
  - CATHETER RELATED INFECTION [None]
  - HAEMORRHAGE URINARY TRACT [None]
  - URINARY RETENTION [None]
  - URINARY TRACT INFECTION [None]
